FAERS Safety Report 10268442 (Version 1)
Quarter: 2014Q2

REPORT INFORMATION
  Report Type: Spontaneous
  Country: US (occurrence: US)
  Receive Date: 20140630
  Receipt Date: 20140630
  Transmission Date: 20141212
  Serious: Yes (Hospitalization)
  Sender: FDA-Public Use
  Company Number: US-BRISTOL-MYERS SQUIBB COMPANY-21137732

PATIENT
  Age: 80 Year
  Sex: Male
  Weight: 112.47 kg

DRUGS (1)
  1. COUMADIN [Suspect]

REACTIONS (1)
  - Fall [Unknown]
